FAERS Safety Report 5956971-5 (Version None)
Quarter: 2008Q4

REPORT INFORMATION
  Report Type: 
  Country: None (occurrence: None)
  Receive Date: 20081118
  Receipt Date: 20081110
  Transmission Date: 20090506
  Serious: Yes (Other)
  Sender: FDA-Public Use
  Company Number: JP-PFIZER INC-2008095523

PATIENT
  Sex: Female

DRUGS (1)
  1. GENOTROPIN [Suspect]
     Route: 058
     Dates: start: 20080501

REACTIONS (1)
  - UTERINE CANCER [None]
